FAERS Safety Report 7749576-7 (Version None)
Quarter: 2011Q3

REPORT INFORMATION
  Report Type: 
  Country: None (occurrence: None)
  Receive Date: 20110908
  Receipt Date: 20110831
  Transmission Date: 20111222
  Serious: Yes (Death, Hospitalization)
  Sender: FDA-Public Use
  Company Number: 2011SP041250

PATIENT
  Age: 91 Year
  Sex: Male

DRUGS (8)
  1. FUROSEMIDE [Concomitant]
  2. AMLODIPINE [Concomitant]
  3. ALLOPURINOL [Concomitant]
  4. SINEMET [Concomitant]
  5. CALCITONIN SALMON [Concomitant]
  6. NITROGLYCERIN [Concomitant]
  7. REMERON [Suspect]
     Indication: DEPRESSION
     Dosage: 15 MG;HS;PO
     Route: 048
     Dates: start: 20101202, end: 20110107
  8. VYTOROM [Concomitant]

REACTIONS (6)
  - SEPTIC SHOCK [None]
  - SKIN HAEMORRHAGE [None]
  - PRURITUS [None]
  - DEVICE RELATED INFECTION [None]
  - SOMNOLENCE [None]
  - UNRESPONSIVE TO STIMULI [None]
